FAERS Safety Report 5634433-2 (Version None)
Quarter: 2008Q1

REPORT INFORMATION
  Report Type: 
  Country: None (occurrence: None)
  Receive Date: 20080222
  Receipt Date: 20080219
  Transmission Date: 20080703
  Serious: Yes (Death, Hospitalization)
  Sender: FDA-Public Use
  Company Number: US-ASTRAZENECA-2007UW26593

PATIENT
  Age: 820 Month
  Sex: Female
  Weight: 96.4 kg

DRUGS (1)
  1. FASLODEX [Suspect]
     Indication: ENDOMETRIAL CANCER
     Dosage: 250 MG ON DAY 1, EVERY 28 DAYS
     Route: 030
     Dates: start: 20070911, end: 20071009

REACTIONS (1)
  - DEEP VEIN THROMBOSIS [None]
